FAERS Safety Report 9087331 (Version 1)
Quarter: 2013Q1

REPORT INFORMATION
  Report Type: Report from Study
  Country: US (occurrence: US)
  Receive Date: 20130130
  Receipt Date: 20130130
  Transmission Date: 20140127
  Serious: No
  Sender: FDA-Public Use
  Company Number: US-ABBOTT-12P-163-0985509-00

PATIENT
  Age: 34 Year
  Sex: Female

DRUGS (1)
  1. HUMIRA [Suspect]
     Indication: CROHN^S DISEASE
     Dates: start: 20120831

REACTIONS (5)
  - Body temperature increased [Unknown]
  - Fluid retention [Unknown]
  - Chest pain [Unknown]
  - Stomatitis [Unknown]
  - Sinusitis [Unknown]
